FAERS Safety Report 4741428-X (Version None)
Quarter: 2005Q3

REPORT INFORMATION
  Report Type: 
  Country: None (occurrence: None)
  Receive Date: 20050808
  Receipt Date: 20050729
  Transmission Date: 20060218
  Serious: Yes (Hospitalization)
  Sender: FDA-Public Use
  Company Number: KII-2005-0017811

PATIENT
  Age: 42 Year
  Sex: Female

DRUGS (6)
  1. OXYCODONE HCL [Suspect]
     Indication: PAIN
     Dosage: ORAL
     Route: 048
  2. OTHER HYPNOTICS AND SEDATIVES [Suspect]
     Indication: DRUG USE FOR UNKNOWN INDICATION
  3. BACLOFEN [Suspect]
     Indication: DRUG USE FOR UNKNOWN INDICATION
  4. BUPROPION HCL [Suspect]
     Indication: DRUG USE FOR UNKNOWN INDICATION
  5. LISINOPRIL [Suspect]
     Indication: DRUG USE FOR UNKNOWN INDICATION
  6. ACETAMINOPHEN [Suspect]
     Indication: DRUG USE FOR UNKNOWN INDICATION

REACTIONS (9)
  - ABNORMAL BEHAVIOUR [None]
  - BLOOD PRESSURE INCREASED [None]
  - CONFUSIONAL STATE [None]
  - DISORIENTATION [None]
  - HEADACHE [None]
  - HEART RATE INCREASED [None]
  - MYDRIASIS [None]
  - STARING [None]
  - TREMOR [None]
